FAERS Safety Report 9115222 (Version 1)
Quarter: 2013Q1

REPORT INFORMATION
  Report Type: Spontaneous
  Country: US (occurrence: None)
  Receive Date: 20130220
  Receipt Date: 20130220
  Transmission Date: 20140127
  Serious: Yes (Hospitalization)
  Sender: FDA-Public Use
  Company Number: None

PATIENT
  Sex: Male
  Weight: 83 kg

DRUGS (1)
  1. ALEMTUZUMAB [Suspect]
     Indication: CHRONIC LYMPHOCYTIC LEUKAEMIA

REACTIONS (6)
  - Confusional state [None]
  - Asthenia [None]
  - Dyspnoea [None]
  - Sepsis [None]
  - White blood cell count decreased [None]
  - Neutrophil count decreased [None]
